FAERS Safety Report 19576536 (Version 2)
Quarter: 2021Q3

REPORT INFORMATION
  Report Type: Spontaneous
  Country: DE (occurrence: DE)
  Receive Date: 20210719
  Receipt Date: 20210921
  Transmission Date: 20211014
  Serious: Yes (Life-Threatening, Hospitalization, Other)
  Sender: FDA-Public Use
  Company Number: DE-EPICPHARMA-DE-2021EPCLIT00736

PATIENT
  Age: 26 Year
  Sex: Male
  Weight: 83 kg

DRUGS (5)
  1. RAMIPRIL. [Suspect]
     Active Substance: RAMIPRIL
     Indication: PRODUCT USED FOR UNKNOWN INDICATION
     Route: 048
  2. ARGIPRESSIN [Interacting]
     Active Substance: ARGIPRESSIN
     Indication: SUPPORTIVE CARE
     Route: 065
  3. DOBUTAMINE [Interacting]
     Active Substance: DOBUTAMINE HYDROCHLORIDE
     Indication: SUPPORTIVE CARE
     Route: 065
  4. AMLODIPINE BESYLATE. [Suspect]
     Active Substance: AMLODIPINE BESYLATE
     Indication: PRODUCT USED FOR UNKNOWN INDICATION
     Route: 048
  5. NOREPINEPHRINE. [Interacting]
     Active Substance: NOREPINEPHRINE
     Indication: SUPPORTIVE CARE
     Route: 065

REACTIONS (5)
  - Pleural effusion [Recovering/Resolving]
  - Atrial fibrillation [Recovering/Resolving]
  - Intentional overdose [Recovering/Resolving]
  - Distributive shock [Recovering/Resolving]
  - Toxicity to various agents [Recovered/Resolved]
